FAERS Safety Report 7076935-0 (Version None)
Quarter: 2010Q4

REPORT INFORMATION
  Report Type: 
  Country: None (occurrence: None)
  Receive Date: 20101101
  Receipt Date: 20101022
  Transmission Date: 20110411
  Serious: Yes (Hospitalization)
  Sender: FDA-Public Use
  Company Number: US-BAXTER-2010BH026497

PATIENT

DRUGS (1)
  1. GAMMAGARD LIQUID [Suspect]
     Route: 065

REACTIONS (2)
  - CARDIAC DISORDER [None]
  - CHEST PAIN [None]
